FAERS Safety Report 12770021 (Version 2)
Quarter: 2016Q4

REPORT INFORMATION
  Report Type: Spontaneous
  Country: US (occurrence: US)
  Receive Date: 20160922
  Receipt Date: 20161220
  Transmission Date: 20170207
  Serious: Yes (Death, Life-Threatening, Hospitalization)
  Sender: FDA-Public Use
  Company Number: US-ASTRAZENECA-2016SE98350

PATIENT
  Age: 73 Year
  Sex: Male

DRUGS (1)
  1. BRILINTA [Suspect]
     Active Substance: TICAGRELOR
     Indication: PERCUTANEOUS CORONARY INTERVENTION
     Route: 048
     Dates: start: 20160909, end: 20160909

REACTIONS (7)
  - Pericardial haemorrhage [Fatal]
  - Post procedural haemorrhage [Fatal]
  - Cardiac perforation [Fatal]
  - Post procedural pneumonia [Fatal]
  - Myocardial ischaemia [Fatal]
  - Ventricular tachyarrhythmia [Fatal]
  - Postoperative renal failure [Fatal]

NARRATIVE: CASE EVENT DATE: 20160909
